FAERS Safety Report 26190887 (Version 1)
Quarter: 2025Q4

REPORT INFORMATION
  Report Type: Spontaneous
  Country: EU (occurrence: EU)
  Receive Date: 20251223
  Receipt Date: 20251223
  Transmission Date: 20260118
  Serious: Yes (Hospitalization, Other)
  Sender: SOMERSET THERAPEUTICS, LLC
  Company Number: EU-MIT-25-75-DE-2025-SOM-LIT-00511

PATIENT
  Age: 54 Year
  Sex: Male

DRUGS (6)
  1. SULFAMETHOXAZOLE\TRIMETHOPRIM [Suspect]
     Active Substance: SULFAMETHOXAZOLE\TRIMETHOPRIM
     Indication: Listeriosis
     Route: 065
  2. VANCOMYCIN [Suspect]
     Active Substance: VANCOMYCIN
     Indication: Drug therapy
     Route: 065
  3. MEROPENEM [Suspect]
     Active Substance: MEROPENEM
     Route: 065
  4. AMPICILLIN [Suspect]
     Active Substance: AMPICILLIN
     Indication: Drug therapy
     Route: 065
  5. AMPICILLIN [Suspect]
     Active Substance: AMPICILLIN
     Route: 065
  6. ACYCLOVIR [Concomitant]
     Active Substance: ACYCLOVIR
     Indication: Product used for unknown indication
     Route: 065

REACTIONS (2)
  - Encephalitis [Recovered/Resolved]
  - Product use in unapproved indication [Unknown]
